FAERS Safety Report 7125042-7 (Version None)
Quarter: 2010Q4

REPORT INFORMATION
  Report Type: 
  Country: None (occurrence: None)
  Receive Date: 20101129
  Receipt Date: 20101115
  Transmission Date: 20110411
  Serious: Yes (Other)
  Sender: FDA-Public Use
  Company Number: US-JNJFOC-20101104483

PATIENT
  Sex: Female
  Weight: 83.92 kg

DRUGS (8)
  1. FENTANYL-100 [Suspect]
     Indication: SURGERY
     Dosage: NDC 0781 7240 55
     Route: 062
  2. FENTANYL-100 [Suspect]
     Route: 062
  3. FENTANYL-100 [Suspect]
     Indication: PAIN
     Route: 062
  4. FENTANYL-100 [Suspect]
     Dosage: NDC 0781 7240 55
     Route: 062
  5. LITHIUM [Concomitant]
     Indication: BIPOLAR DISORDER
     Route: 048
  6. NORCO [Concomitant]
     Indication: BREAKTHROUGH PAIN
     Route: 048
  7. HUMALOG [Concomitant]
     Indication: DIABETES MELLITUS
     Route: 058
  8. KLONOPIN [Concomitant]
     Indication: ANXIETY
     Route: 048

REACTIONS (17)
  - ABDOMINAL PAIN UPPER [None]
  - ANXIETY [None]
  - ASTHENIA [None]
  - CYSTITIS [None]
  - DEPRESSION [None]
  - DIZZINESS [None]
  - FEAR OF DEATH [None]
  - HEADACHE [None]
  - MENTAL DISORDER [None]
  - NASAL CONGESTION [None]
  - NAUSEA [None]
  - OVERDOSE [None]
  - PRODUCT ADHESION ISSUE [None]
  - SOMNOLENCE [None]
  - THERAPEUTIC RESPONSE DECREASED [None]
  - WITHDRAWAL SYNDROME [None]
  - WRONG TECHNIQUE IN DRUG USAGE PROCESS [None]
